FAERS Safety Report 15524752 (Version 1)
Quarter: 2018Q4

REPORT INFORMATION
  Report Type: Spontaneous
  Country: US (occurrence: US)
  Receive Date: 20181015
  Receipt Date: 20181015
  Transmission Date: 20190205
  Serious: No
  Sender: FDA-Public Use
  Company Number: None

PATIENT
  Age: 84 Year
  Sex: Male
  Weight: 102.51 kg

DRUGS (2)
  1. PROLIA [Suspect]
     Active Substance: DENOSUMAB
     Indication: PROSTATE CANCER
     Dosage: INJECTED 60MG SUBCUTANEOUSLY EVERY 6 MONTHS AS DIRECTED
     Route: 058
     Dates: start: 201704
  2. PROLIA [Suspect]
     Active Substance: DENOSUMAB
     Indication: SENILE OSTEOPOROSIS
     Dosage: INJECTED 60MG SUBCUTANEOUSLY EVERY 6 MONTHS AS DIRECTED
     Route: 058
     Dates: start: 201704

REACTIONS (3)
  - Flank pain [None]
  - Dyspnoea [None]
  - Dizziness [None]
